FAERS Safety Report 24042045 (Version 1)
Quarter: 2024Q3

REPORT INFORMATION
  Report Type: Spontaneous
  Country: US (occurrence: None)
  Receive Date: 20240701
  Receipt Date: 20240701
  Transmission Date: 20241017
  Serious: Yes (Disabling)
  Sender: Public
  Company Number: None

PATIENT
  Age: 44 Year
  Sex: Female
  Weight: 108 kg

DRUGS (13)
  1. WEGOVY [Suspect]
     Active Substance: SEMAGLUTIDE
     Indication: Weight control
     Dosage: 1 INJECTION  WEEKLY SUBCUTANEOUS ?
     Route: 058
  2. ZYRTEC [Concomitant]
     Active Substance: CETIRIZINE HYDROCHLORIDE
  3. ALBUTEROL [Concomitant]
     Active Substance: ALBUTEROL
  4. SYMBICORT [Concomitant]
     Active Substance: BUDESONIDE\FORMOTEROL FUMARATE DIHYDRATE
  5. LINZESS [Concomitant]
     Active Substance: LINACLOTIDE
  6. CELEBREX [Concomitant]
     Active Substance: CELECOXIB
  7. EMGALITY [Concomitant]
     Active Substance: GALCANEZUMAB-GNLM
  8. MULTIVITAMIN DAILY [Concomitant]
  9. MAG07 [Concomitant]
  10. PROBIOTICS NOS [Concomitant]
     Active Substance: PROBIOTICS NOS
  11. MIRALAX [Concomitant]
     Active Substance: POLYETHYLENE GLYCOL 3350
  12. STOOL SOFTENER (DOCUSATE) [Concomitant]
     Active Substance: DOCUSATE
  13. DULCOLAX [Concomitant]

REACTIONS (3)
  - Migraine [None]
  - Decreased activity [None]
  - Drug interaction [None]

NARRATIVE: CASE EVENT DATE: 20240602
